FAERS Safety Report 5663253-8 (Version None)
Quarter: 2008Q1

REPORT INFORMATION
  Report Type: 
  Country: None (occurrence: None)
  Receive Date: 20080313
  Receipt Date: 20080301
  Transmission Date: 20080703
  Serious: Yes (Disabling)
  Sender: FDA-Public Use
  Company Number: JP-PFIZER INC-2008020088

PATIENT
  Age: 70 Year
  Sex: Male

DRUGS (14)
  1. NORVASC [Suspect]
     Dosage: DAILY DOSE:5MG
     Route: 048
  2. ALDACTONE [Suspect]
     Dosage: DAILY DOSE:25MG
  3. ARTIST [Suspect]
     Route: 048
  4. PANALDINE [Suspect]
     Route: 048
  5. DIART [Suspect]
     Route: 048
  6. OMEPRAZOLE [Suspect]
     Route: 048
  7. IMIDAPRIL HYDROCHLORIDE [Suspect]
     Route: 048
  8. LIVALO [Suspect]
     Route: 048
  9. HERBESSER R [Suspect]
     Route: 048
  10. GASMOTIN [Suspect]
     Route: 048
  11. ASPIRIN [Suspect]
     Route: 048
  12. ISOSORBIDE DINITRATE [Suspect]
  13. RESLIN [Suspect]
     Route: 048
  14. LENDORMIN [Suspect]
     Route: 048

REACTIONS (1)
  - FEELING COLD [None]
